FAERS Safety Report 22615977 (Version 1)
Quarter: 2023Q2

REPORT INFORMATION
  Report Type: Spontaneous
  Country: CN (occurrence: CN)
  Receive Date: 20230619
  Receipt Date: 20230619
  Transmission Date: 20230722
  Serious: Yes (Hospitalization, Other)
  Sender: FDA-Public Use
  Company Number: None

PATIENT
  Age: 54 Year
  Sex: Male
  Weight: 56 kg

DRUGS (9)
  1. CYCLOPHOSPHAMIDE [Suspect]
     Active Substance: CYCLOPHOSPHAMIDE
     Indication: Diffuse large B-cell lymphoma
     Dosage: 1.1 G, QD DILUTED WITH 100 ML SODIUM CHLORIDE (NS)
     Route: 041
     Dates: start: 20230526, end: 20230526
  2. SODIUM CHLORIDE [Suspect]
     Active Substance: SODIUM CHLORIDE
     Indication: Medication dilution
     Dosage: 0.9% 100 ML, QD, USED TO DILUTE 100 MG EPIRUBICIN
     Route: 041
     Dates: start: 20230526, end: 20230526
  3. SODIUM CHLORIDE [Suspect]
     Active Substance: SODIUM CHLORIDE
     Dosage: 0.9% 100 ML, QD USED TO DILUTE 0.1 G RITUXIMAB
     Route: 041
     Dates: start: 20230526, end: 20230526
  4. SODIUM CHLORIDE [Suspect]
     Active Substance: SODIUM CHLORIDE
     Dosage: 0.9% 20 ML, QD, USED TO DILUTE 2 MG VINCRISTINE
     Route: 042
     Dates: start: 20230526, end: 20230526
  5. EPIRUBICIN [Suspect]
     Active Substance: EPIRUBICIN
     Indication: Diffuse large B-cell lymphoma
     Dosage: 100 MG, QD DILUTED WITH 100 ML SODIUM CHLORIDE (NS)
     Route: 041
     Dates: start: 20230526, end: 20230526
  6. RITUXIMAB [Suspect]
     Active Substance: RITUXIMAB
     Indication: Diffuse large B-cell lymphoma
     Dosage: 0.1 G, QD DILUTED WITH 100 ML SODIUM CHLORIDE (NS)
     Route: 041
     Dates: start: 20230526, end: 20230526
  7. VINCRISTINE [Suspect]
     Active Substance: VINCRISTINE
     Indication: Diffuse large B-cell lymphoma
     Dosage: 2 MG, QD, DILUTED WITH 20 ML SODIUM CHLORIDE (NS)
     Route: 042
     Dates: start: 20230526, end: 20230526
  8. SODIUM CHLORIDE [Suspect]
     Active Substance: SODIUM CHLORIDE
     Indication: Medication dilution
     Dosage: 100 ML, QD, USED TO DILUTE 1.1 G CYCLOPHOSPHAMIDE
     Route: 041
     Dates: start: 20230526, end: 20230526
  9. SODIUM CHLORIDE [Suspect]
     Active Substance: SODIUM CHLORIDE
     Dosage: 10 ML, QD
     Route: 042
     Dates: start: 20230526, end: 20230526

REACTIONS (1)
  - Myelosuppression [Recovering/Resolving]

NARRATIVE: CASE EVENT DATE: 20230602
